FAERS Safety Report 13432392 (Version 3)
Quarter: 2017Q3

REPORT INFORMATION
  Report Type: Spontaneous
  Country: US (occurrence: US)
  Receive Date: 20170412
  Receipt Date: 20170922
  Transmission Date: 20171127
  Serious: Yes (Death)
  Sender: FDA-Public Use
  Company Number: US-JNJFOC-20170330052

PATIENT
  Sex: Male

DRUGS (6)
  1. XARELTO [Suspect]
     Active Substance: RIVAROXABAN
     Indication: PULMONARY EMBOLISM
     Route: 048
     Dates: start: 20160403, end: 20160424
  2. XARELTO [Suspect]
     Active Substance: RIVAROXABAN
     Indication: DEEP VEIN THROMBOSIS
     Route: 048
     Dates: start: 20160403, end: 20160424
  3. XARELTO [Suspect]
     Active Substance: RIVAROXABAN
     Indication: DEEP VEIN THROMBOSIS
     Route: 048
     Dates: start: 20160425, end: 20160912
  4. XARELTO [Suspect]
     Active Substance: RIVAROXABAN
     Indication: PULMONARY EMBOLISM
     Dosage: DOSES OF 15 MG AND 20. RIVAROXABAN 20 MG 1 TABLET BY ORAL ROUTE EVERY DAY WITH THE EVENING MEAL.
     Route: 048
     Dates: start: 20160303, end: 2016
  5. XARELTO [Suspect]
     Active Substance: RIVAROXABAN
     Indication: DEEP VEIN THROMBOSIS
     Dosage: DOSES OF 15 MG AND 20. RIVAROXABAN 20 MG 1 TABLET BY ORAL ROUTE EVERY DAY WITH THE EVENING MEAL.
     Route: 048
     Dates: start: 20160303, end: 2016
  6. XARELTO [Suspect]
     Active Substance: RIVAROXABAN
     Indication: PULMONARY EMBOLISM
     Route: 048
     Dates: start: 20160425, end: 20160912

REACTIONS (1)
  - Bleeding varicose vein [Fatal]

NARRATIVE: CASE EVENT DATE: 2016
